FAERS Safety Report 5034624-8 (Version None)
Quarter: 2006Q2

REPORT INFORMATION
  Report Type: 
  Country: None (occurrence: None)
  Receive Date: 20060621
  Receipt Date: 20060613
  Transmission Date: 20061013
  Serious: Yes (Other)
  Sender: FDA-Public Use
  Company Number: 2006-02-1134

PATIENT
  Age: 59 Year
  Sex: Female

DRUGS (1)
  1. NASONEX [Suspect]
     Dosage: 100-200MCG QD NASAL SPRA

REACTIONS (3)
  - FLATULENCE [None]
  - FUNGAL INFECTION [None]
  - MUCOUS MEMBRANE DISORDER [None]
